FAERS Safety Report 17193371 (Version 3)
Quarter: 2020Q1

REPORT INFORMATION
  Report Type: Spontaneous
  Country: US (occurrence: US)
  Receive Date: 20191223
  Receipt Date: 20200303
  Transmission Date: 20200409
  Serious: Yes (Death)
  Sender: FDA-Public Use
  Company Number: US-ACTELION-A-US2019-199332

PATIENT
  Age: 56 Year
  Sex: Male
  Weight: 68.03 kg

DRUGS (2)
  1. OPSUMIT [Suspect]
     Active Substance: MACITENTAN
     Indication: PULMONARY HYPERTENSION
     Dosage: 10 MG, QD
     Route: 048
  2. SILDENAFIL CITRATE. [Concomitant]
     Active Substance: SILDENAFIL CITRATE

REACTIONS (4)
  - Extra dose administered [Unknown]
  - Dyspnoea [Unknown]
  - Dizziness postural [Unknown]
  - Death [Fatal]

NARRATIVE: CASE EVENT DATE: 20191203
